FAERS Safety Report 4573693-6 (Version None)
Quarter: 2005Q1

REPORT INFORMATION
  Report Type: 
  Country: None (occurrence: None)
  Receive Date: 20050203
  Receipt Date: 20050124
  Transmission Date: 20050727
  Serious: Yes (Other)
  Sender: FDA-Public Use
  Company Number: 2005US000105

PATIENT
  Sex: Female

DRUGS (3)
  1. PROGRAF (TACRLOIMUS CAPSULES)CAPSULE [Suspect]
     Indication: PROPHYLAXIS AGAINST TRANSPLANT REJECTION
  2. ZENAPAX [Suspect]
     Indication: PROPHYLAXIS AGAINST TRANSPLANT REJECTION
  3. SIROLIMUS (SIROLIMUS) [Suspect]
     Indication: PROPHYLAXIS AGAINST TRANSPLANT REJECTION

REACTIONS (4)
  - DRUG INEFFECTIVE [None]
  - MENSTRUATION IRREGULAR [None]
  - OVARIAN CYST [None]
  - PELVIC PAIN [None]
